FAERS Safety Report 26209324 (Version 1)
Quarter: 2025Q4

REPORT INFORMATION
  Report Type: Report from Study
  Country: GB (occurrence: GB)
  Receive Date: 20251229
  Receipt Date: 20251229
  Transmission Date: 20260118
  Serious: Yes (Death)
  Sender: PFIZER
  Company Number: GB-PFIZER INC-PV202500151081

PATIENT
  Age: 83 Year
  Sex: Male
  Weight: 61.5 kg

DRUGS (4)
  1. ELRANATAMAB [Suspect]
     Active Substance: ELRANATAMAB
     Dosage: 12 MG C1D1
     Dates: start: 20251001, end: 20251001
  2. ELRANATAMAB [Suspect]
     Active Substance: ELRANATAMAB
     Dosage: 32 MG C1D4
     Dates: start: 20251004, end: 20251004
  3. ELRANATAMAB [Suspect]
     Active Substance: ELRANATAMAB
     Dosage: 76 MG D8, D15, D22
     Dates: start: 20251008, end: 20251022
  4. ELRANATAMAB [Suspect]
     Active Substance: ELRANATAMAB
     Dosage: 76 MG CYCLE 2 D1, D8,D15
     Dates: start: 20251029, end: 20251119

REACTIONS (1)
  - Pneumonia [Fatal]
